FAERS Safety Report 11941130 (Version 1)
Quarter: 2016Q1

REPORT INFORMATION
  Report Type: Spontaneous
  Country: US (occurrence: US)
  Receive Date: 20160122
  Receipt Date: 20160122
  Transmission Date: 20160526
  Serious: Yes (Other)
  Sender: FDA-Public Use
  Company Number: US-ASTRAZENECA-2016SE04938

PATIENT
  Age: 77 Year
  Sex: Male
  Weight: 80.7 kg

DRUGS (7)
  1. PREDNISONE. [Suspect]
     Active Substance: PREDNISONE
     Route: 065
  2. LUPRON [Suspect]
     Active Substance: LEUPROLIDE ACETATE
     Indication: PROSTATE CANCER STAGE IV
     Dosage: 30 MILLIGRAM INJECTION, 1 IN 4 M
     Route: 065
     Dates: start: 201108
  3. ZOMETA [Suspect]
     Active Substance: ZOLEDRONIC ACID
     Indication: METASTASES TO BONE
     Dosage: UNKNOWN, 1 IN 1 M
     Route: 065
  4. ZYTIGA [Suspect]
     Active Substance: ABIRATERONE ACETATE
     Indication: PROSTATIC SPECIFIC ANTIGEN INCREASED
     Dosage: 1000 MG, 1 IN 1 D
     Route: 065
     Dates: start: 20140922
  5. LASIX [Concomitant]
     Active Substance: FUROSEMIDE
  6. CASODEX [Suspect]
     Active Substance: BICALUTAMIDE
     Route: 048
  7. POTASSIUM [Concomitant]
     Active Substance: POTASSIUM

REACTIONS (5)
  - Vitamin D deficiency [Unknown]
  - Metastases to bone [Unknown]
  - Dyspnoea [Recovered/Resolved]
  - Cardiac failure congestive [Unknown]
  - Prostatic specific antigen increased [Unknown]

NARRATIVE: CASE EVENT DATE: 201310
